FAERS Safety Report 9482132 (Version 2)
Quarter: 2013Q3

REPORT INFORMATION
  Report Type: Report from Study
  Country: HU (occurrence: HU)
  Receive Date: 20130828
  Receipt Date: 20130828
  Transmission Date: 20140515
  Serious: Yes (Hospitalization)
  Sender: FDA-Public Use
  Company Number: PHHO2012HU004627

PATIENT
  Age: 50 Year
  Sex: Male
  Weight: 111 kg

DRUGS (5)
  1. PLACEBO [Suspect]
     Indication: CORONARY ARTERY DISEASE
     Dosage: UNK
     Route: 048
     Dates: start: 20110121
  2. ALISKIREN [Suspect]
     Indication: CORONARY ARTERY DISEASE
     Dosage: 150 MG, UNK
  3. ASPIRIN [Concomitant]
     Indication: MYOCARDIAL ISCHAEMIA
     Dosage: 100 MG, QD
     Route: 048
     Dates: start: 2010
  4. DIAPREL [Concomitant]
     Indication: DIABETES MELLITUS
     Dosage: 900 MG, QD
     Route: 048
     Dates: start: 2010
  5. PRENESSA [Concomitant]
     Indication: HYPERTENSION
     Dosage: 04 MG, QD
     Route: 048
     Dates: start: 2010

REACTIONS (1)
  - Pneumonia [Recovered/Resolved]
